FAERS Safety Report 17485984 (Version 1)
Quarter: 2020Q1

REPORT INFORMATION
  Report Type: Spontaneous
  Country: ES (occurrence: ES)
  Receive Date: 20200303
  Receipt Date: 20200303
  Transmission Date: 20200409
  Serious: Yes (Hospitalization)
  Sender: FDA-Public Use
  Company Number: ES-SUN PHARMACEUTICAL INDUSTRIES LTD-2020RR-238850

PATIENT
  Age: 81 Year
  Sex: Male

DRUGS (6)
  1. SINTROM [Interacting]
     Active Substance: ACENOCOUMAROL
     Indication: ATRIAL FIBRILLATION
     Dosage: UNK
     Route: 048
     Dates: start: 201810, end: 20190825
  2. SPIRIVA 18 MICROGRAMOS POLVO PARA INHALACION [Concomitant]
     Indication: EMPHYSEMA
     Dosage: 18 MICROGRAM, DAILY
     Route: 055
     Dates: end: 20190825
  3. FUROSEMIDA (1615A) [Concomitant]
     Active Substance: FUROSEMIDE
     Indication: CHRONIC KIDNEY DISEASE
     Dosage: 40 MILLIGRAM, DAILY
     Route: 048
     Dates: start: 201405, end: 20190825
  4. ATORVASTATIN [Suspect]
     Active Substance: ATORVASTATIN
     Indication: DYSLIPIDAEMIA
     Dosage: 40 MILLIGRAM, DAILY
     Route: 048
     Dates: start: 201110, end: 20190825
  5. ENALAPRIL MALEATO (2142MA) [Concomitant]
     Active Substance: ENALAPRIL MALEATE
     Indication: HYPERTENSION
     Dosage: 10 MILLIGRAM, DAILY
     Route: 048
     Dates: start: 20190129
  6. BOREA 160 MG COMPRIMIDOS , 30 COMPRIMIDOS [Concomitant]
     Indication: CHRONIC KIDNEY DISEASE
     Dosage: 160 MILLIGRAM, DAILY
     Route: 048
     Dates: start: 20190725, end: 20190825

REACTIONS (1)
  - Lower gastrointestinal haemorrhage [Recovered/Resolved]

NARRATIVE: CASE EVENT DATE: 20190823
